FAERS Safety Report 8567777 (Version 2)
Quarter: 2014Q1

REPORT INFORMATION
  Report Type: Spontaneous
  Country: US (occurrence: US)
  Receive Date: 20120518
  Receipt Date: 20140206
  Transmission Date: 20141002
  Serious: Yes (Other)
  Sender: FDA-Public Use
  Company Number: PHHY2012US041071

PATIENT
  Age: 59 Year
  Sex: Male

DRUGS (3)
  1. CEFEPIME [Suspect]
     Indication: PSEUDOMONAS TEST POSITIVE
  2. VANCOMYCIN [Concomitant]
  3. LINEZOLID [Concomitant]

REACTIONS (20)
  - Drug reaction with eosinophilia and systemic symptoms [Unknown]
  - Face oedema [Unknown]
  - Pyrexia [Unknown]
  - Leukocytosis [Unknown]
  - Tachycardia [Unknown]
  - Rash macular [Unknown]
  - Eosinophilia [Unknown]
  - Neutrophilia [Unknown]
  - Rash erythematous [Unknown]
  - Multi-organ failure [Unknown]
  - Enterococcus test positive [Unknown]
  - Acidosis [Unknown]
  - Tubulointerstitial nephritis [Unknown]
  - Encephalopathy [Unknown]
  - Confusional state [Unknown]
  - Somnolence [Unknown]
  - Renal failure acute [Unknown]
  - Anuria [Unknown]
  - Pyuria [Unknown]
  - Hypotension [Unknown]
